FAERS Safety Report 14204173 (Version 1)
Quarter: 2017Q4

REPORT INFORMATION
  Report Type: Spontaneous
  Country: US (occurrence: None)
  Receive Date: 20171118
  Receipt Date: 20171118
  Transmission Date: 20180321
  Serious: No
  Sender: FDA-Public Use
  Company Number: None

PATIENT
  Age: 74 Year
  Sex: Male
  Weight: 70.76 kg

DRUGS (18)
  1. MECLIZINE [Concomitant]
     Active Substance: MECLIZINE HYDROCHLORIDE
  2. VITAMIN B12 [Concomitant]
     Active Substance: CYANOCOBALAMIN
  3. PROBIOTIC [Concomitant]
     Active Substance: PROBIOTICS NOS
  4. CHEWABLE MULTI VITAMIN W/D3 [Concomitant]
  5. CREON [Concomitant]
     Active Substance: PANCRELIPASE AMYLASE\PANCRELIPASE LIPASE\PANCRELIPASE PROTEASE
  6. POTASSIUM [Concomitant]
     Active Substance: POTASSIUM
  7. FISH OIL [Concomitant]
     Active Substance: FISH OIL
  8. RANITIDINE. [Concomitant]
     Active Substance: RANITIDINE
  9. IBANDRONATE SODIUM TABLETS [Suspect]
     Active Substance: IBANDRONATE SODIUM
     Indication: OSTEOPOROSIS
     Dosage: 3 MONTH SUPPLY  ONCE MONTHLY  BY MOUTH
     Route: 048
     Dates: start: 20171101, end: 20171101
  10. CREON [Concomitant]
     Active Substance: PANCRELIPASE AMYLASE\PANCRELIPASE LIPASE\PANCRELIPASE PROTEASE
  11. K-2 [Concomitant]
  12. VITAMIN D3 [Concomitant]
     Active Substance: CHOLECALCIFEROL
  13. MAGNESIUM [Concomitant]
     Active Substance: MAGNESIUM
  14. FISH OIL [Concomitant]
     Active Substance: FISH OIL
  15. VITAMIN A [Concomitant]
     Active Substance: VITAMIN A
  16. UBIQUINOL COQ10 [Concomitant]
  17. BAYER ASPIRIN [Concomitant]
     Active Substance: ASPIRIN
  18. CHEWABLE MULTI VITAMIN [Concomitant]

REACTIONS (3)
  - Back pain [None]
  - Arthralgia [None]
  - Pain in extremity [None]

NARRATIVE: CASE EVENT DATE: 20171101
